FAERS Safety Report 19743758 (Version 1)
Quarter: 2021Q3

REPORT INFORMATION
  Report Type: Spontaneous
  Country: JP (occurrence: JP)
  Receive Date: 20210824
  Receipt Date: 20210824
  Transmission Date: 20211014
  Serious: Yes (Death, Hospitalization, Other)
  Sender: FDA-Public Use
  Company Number: JP-SETONPHARMA-2021SETLIT00033

PATIENT
  Age: 50 Year
  Sex: Male

DRUGS (9)
  1. MEROPENEM. [Concomitant]
     Active Substance: MEROPENEM
     Indication: SEPTIC SHOCK
     Route: 065
  2. FILGRASTIM [Concomitant]
     Active Substance: FILGRASTIM
     Indication: SEPTIC SHOCK
     Route: 065
  3. VASOPRESSIN. [Concomitant]
     Active Substance: VASOPRESSIN
     Indication: SEPTIC SHOCK
     Route: 065
  4. PREDNISOLONE. [Suspect]
     Active Substance: PREDNISOLONE
     Indication: ACUTE LYMPHOCYTIC LEUKAEMIA
     Route: 065
  5. RASBURICASE [Concomitant]
     Active Substance: RASBURICASE
     Indication: ACUTE LYMPHOCYTIC LEUKAEMIA
     Route: 065
  6. DOPAMINE [Interacting]
     Active Substance: DOPAMINE HYDROCHLORIDE
     Indication: MYOCARDIAL CALCIFICATION
     Dosage: 5 MICRO G/KG/MIN
     Route: 065
  7. DOBUTAMINE [Interacting]
     Active Substance: DOBUTAMINE HYDROCHLORIDE
     Indication: MYOCARDIAL CALCIFICATION
     Dosage: 5 MICRO G/KG/MIN
     Route: 065
  8. NOREPINEPHRINE. [Concomitant]
     Active Substance: NOREPINEPHRINE
     Indication: SEPTIC SHOCK
     Route: 065
  9. ISOSORBIDE DINITRATE. [Interacting]
     Active Substance: ISOSORBIDE DINITRATE
     Indication: MYOCARDIAL CALCIFICATION
     Route: 065

REACTIONS (7)
  - Respiratory failure [Fatal]
  - Left ventricular failure [Unknown]
  - Myocardial calcification [Fatal]
  - Chest discomfort [Unknown]
  - Circulatory collapse [Fatal]
  - Hepatic failure [Fatal]
  - Renal failure [Fatal]
